FAERS Safety Report 9182561 (Version 1)
Quarter: 2013Q1

REPORT INFORMATION
  Report Type: Spontaneous
  Country: US (occurrence: US)
  Receive Date: 20130322
  Receipt Date: 20130322
  Transmission Date: 20140127
  Serious: No
  Sender: FDA-Public Use
  Company Number: US-BRISTOL-MYERS SQUIBB COMPANY-16825655

PATIENT
  Age: 62 Year
  Sex: Male
  Weight: 60.32 kg

DRUGS (1)
  1. ERBITUX [Suspect]
     Indication: LARYNGEAL CANCER
     Dosage: NO OF TREATMENTS 8

REACTIONS (11)
  - Skin swelling [Unknown]
  - Laceration [Unknown]
  - Oral pain [Unknown]
  - Oropharyngeal pain [Unknown]
  - Haemoptysis [Unknown]
  - Acne [Unknown]
  - Fatigue [Unknown]
  - Hypersomnia [Unknown]
  - Alopecia [Unknown]
  - Eyelash discolouration [Unknown]
  - Growth of eyelashes [Unknown]
